FAERS Safety Report 6610746-2 (Version None)
Quarter: 2010Q1

REPORT INFORMATION
  Report Type: 
  Country: None (occurrence: None)
  Receive Date: 20100302
  Receipt Date: 20100223
  Transmission Date: 20100710
  Serious: Yes (Life-Threatening, Hospitalization)
  Sender: FDA-Public Use
  Company Number: B0619655A

PATIENT
  Sex: Female

DRUGS (23)
  1. WARFARIN SODIUM [Suspect]
     Indication: THROMBOSIS PROPHYLAXIS
     Dosage: 4MG PER DAY
     Route: 048
     Dates: start: 20080314
  2. DIGOXIN [Suspect]
     Dates: start: 20091004
  3. APIXABAN [Suspect]
     Indication: THROMBOSIS PROPHYLAXIS
     Route: 048
     Dates: start: 20080314
  4. PLACEBO [Suspect]
     Indication: THROMBOSIS PROPHYLAXIS
     Route: 048
     Dates: start: 20080314
  5. BISOPROLOL [Suspect]
     Dates: start: 20091004
  6. ASPIRIN [Concomitant]
  7. GLIMEPIRIDE [Concomitant]
     Dates: start: 20080519
  8. RILMENIDINE [Concomitant]
     Dates: start: 20080519
  9. DOXAZOSIN MESYLATE [Concomitant]
     Dosage: 10MG PER DAY
     Dates: start: 20080314
  10. METFORMIN HYDROCHLORIDE [Concomitant]
  11. LISINOPRIL [Concomitant]
  12. AMLODIPINE [Concomitant]
  13. FUROSEMIDE [Concomitant]
     Dates: start: 20090313
  14. CHLORTHALIDONE [Concomitant]
     Dates: start: 20080612
  15. TELMISARTAN [Concomitant]
     Dates: start: 20080916
  16. FOSINOPRIL SODIUM [Concomitant]
  17. POTASSIUM [Concomitant]
  18. SPIRONOLACTONE [Concomitant]
  19. METOPROLOL TARTRATE [Concomitant]
  20. ALLOPURINOL [Concomitant]
  21. COLCHICINE [Concomitant]
  22. DIHYDRALAZINE [Concomitant]
  23. NIMESULIDE [Concomitant]
     Dates: start: 20091026, end: 20091029

REACTIONS (12)
  - ASTHENIA [None]
  - ATRIAL FIBRILLATION [None]
  - ATRIAL TACHYCARDIA [None]
  - ATRIOVENTRICULAR BLOCK COMPLETE [None]
  - BRADYCARDIA [None]
  - CARDIAC FAILURE [None]
  - CARDIAC FAILURE CONGESTIVE [None]
  - DUODENAL ULCER HAEMORRHAGE [None]
  - DYSPNOEA [None]
  - FAECES DISCOLOURED [None]
  - HAEMATOCRIT DECREASED [None]
  - HAEMOGLOBIN DECREASED [None]
